FAERS Safety Report 13010522 (Version 2)
Quarter: 2016Q4

REPORT INFORMATION
  Report Type: Spontaneous
  Country: DE (occurrence: DE)
  Receive Date: 20161208
  Receipt Date: 20161220
  Transmission Date: 20170207
  Serious: No
  Sender: FDA-Public Use
  Company Number: DE-GLAXOSMITHKLINE-DE2016GSK133509

PATIENT
  Age: 19 Year
  Sex: Male
  Weight: 92 kg

DRUGS (1)
  1. RELVAR ELLIPTA [Suspect]
     Active Substance: FLUTICASONE FUROATE\VILANTEROL TRIFENATATE
     Indication: ASTHMA
     Dosage: UNK
     Dates: start: 20160316, end: 20161015

REACTIONS (4)
  - Skin striae [Unknown]
  - Skin haemorrhage [Unknown]
  - Weight decreased [Unknown]
  - Weight increased [Unknown]

NARRATIVE: CASE EVENT DATE: 201608
